FAERS Safety Report 14300629 (Version 1)
Quarter: 2017Q4

REPORT INFORMATION
  Report Type: Other
  Country: FR (occurrence: US)
  Receive Date: 20171219
  Receipt Date: 20171219
  Transmission Date: 20180321
  Serious: Yes (Death, Hospitalization)
  Sender: FDA-Public Use
  Company Number: US-VELOXIS PHARMACEUTICALS-2037379

PATIENT
  Age: 62 Year
  Sex: Male

DRUGS (8)
  1. CYCLOSPORINE. [Concomitant]
     Active Substance: CYCLOSPORINE
  2. METHYLPREDNISOLONE. [Concomitant]
     Active Substance: METHYLPREDNISOLONE
  3. MYCOPHENOLATE MOFETIL. [Concomitant]
     Active Substance: MYCOPHENOLATE MOFETIL
  4. FLUDARABINE [Concomitant]
     Active Substance: FLUDARABINE PHOSPHATE
  5. SIROLIMUS. [Concomitant]
     Active Substance: SIROLIMUS
  6. ENVARSUS XR [Suspect]
     Active Substance: TACROLIMUS
     Indication: GRAFT VERSUS HOST DISEASE IN GASTROINTESTINAL TRACT
  7. MELPHALAN. [Concomitant]
     Active Substance: MELPHALAN
  8. THYMOGLOBULIN [Concomitant]
     Active Substance: LAPINE T-LYMPHOCYTE IMMUNE GLOBULIN

REACTIONS (5)
  - Intentional product use issue [Unknown]
  - Septic shock [Fatal]
  - Graft versus host disease [Not Recovered/Not Resolved]
  - Acute respiratory distress syndrome [Fatal]
  - Pneumonia pseudomonal [Not Recovered/Not Resolved]
